FAERS Safety Report 11750622 (Version 1)
Quarter: 2015Q4

REPORT INFORMATION
  Report Type: Spontaneous
  Country: US (occurrence: None)
  Receive Date: 20151117
  Receipt Date: 20151117
  Transmission Date: 20160304
  Serious: Yes (Other)
  Sender: FDA-Public Use
  Company Number: None

PATIENT
  Age: 33 Year
  Sex: Male
  Weight: 43.55 kg

DRUGS (1)
  1. VIMPAT [Suspect]
     Active Substance: LACOSAMIDE
     Indication: SEIZURE
     Dosage: ALMOST A MONTH

REACTIONS (6)
  - Agitation [None]
  - Head banging [None]
  - Mental status changes [None]
  - Abnormal behaviour [None]
  - Self injurious behaviour [None]
  - Aggression [None]

NARRATIVE: CASE EVENT DATE: 20151108
